FAERS Safety Report 9003328 (Version 1)
Quarter: 2013Q1

REPORT INFORMATION
  Report Type: Spontaneous
  Country: US (occurrence: US)
  Receive Date: 20130108
  Receipt Date: 20130108
  Transmission Date: 20140127
  Serious: No
  Sender: FDA-Public Use
  Company Number: US-ASTRAZENECA-2013SE00366

PATIENT
  Age: 40 Year
  Sex: Female

DRUGS (1)
  1. PRILOSEC OTC [Suspect]
     Indication: GASTROOESOPHAGEAL REFLUX DISEASE
     Route: 048

REACTIONS (7)
  - Hot flush [Unknown]
  - Chest pain [Unknown]
  - Pharyngeal hypoaesthesia [Unknown]
  - Tremor [Unknown]
  - Insomnia [Unknown]
  - Paraesthesia [Unknown]
  - Drug ineffective [Unknown]
